FAERS Safety Report 17064402 (Version 1)
Quarter: 2019Q4

REPORT INFORMATION
  Report Type: Spontaneous
  Country: CN (occurrence: CN)
  Receive Date: 20191122
  Receipt Date: 20191122
  Transmission Date: 20200122
  Serious: Yes (Other)
  Sender: FDA-Public Use
  Company Number: CN-PFIZER INC-2019501089

PATIENT
  Age: 50 Year
  Sex: Female

DRUGS (3)
  1. BETAHISTINE MESILATE [Concomitant]
     Active Substance: BETAHISTINE MESILATE
     Dosage: 6 MG, 3X/DAY
     Route: 048
  2. LIPITOR [Suspect]
     Active Substance: ATORVASTATIN CALCIUM
     Indication: PROPHYLAXIS
     Dosage: 20 MG, 1X/DAY
     Route: 048
     Dates: start: 20191011, end: 20191012
  3. AMLODIPINE [Concomitant]
     Active Substance: AMLODIPINE BESYLATE
     Dosage: 5 MG, DAILY (QD)
     Route: 048

REACTIONS (4)
  - Carbohydrate antigen 19-9 increased [Unknown]
  - Blood bilirubin increased [Recovering/Resolving]
  - Drug-induced liver injury [Unknown]
  - Transaminases increased [Recovering/Resolving]

NARRATIVE: CASE EVENT DATE: 20191012
